FAERS Safety Report 10232863 (Version 1)
Quarter: 2014Q2

REPORT INFORMATION
  Report Type: Spontaneous
  Country: US (occurrence: None)
  Receive Date: 20140610
  Receipt Date: 20140610
  Transmission Date: 20141212
  Serious: No
  Sender: FDA-Public Use
  Company Number: C-14-051

PATIENT
  Sex: Female

DRUGS (1)
  1. PHENTERMINE [Suspect]
     Indication: DECREASED APPETITE
     Dates: start: 201404

REACTIONS (1)
  - Drug ineffective [None]
